FAERS Safety Report 21796124 (Version 1)
Quarter: 2022Q4

REPORT INFORMATION
  Report Type: Spontaneous
  Country: JP (occurrence: JP)
  Receive Date: 20221229
  Receipt Date: 20221229
  Transmission Date: 20230113
  Serious: Yes (Other)
  Sender: FDA-Public Use
  Company Number: JP-PFIZER INC-202201396440

PATIENT

DRUGS (1)
  1. SULFASALAZINE [Suspect]
     Active Substance: SULFASALAZINE
     Indication: Colitis ulcerative
     Dosage: UNK
     Route: 048
     Dates: start: 2001

REACTIONS (4)
  - Renal impairment [Unknown]
  - Tubulointerstitial nephritis [Unknown]
  - Nephrosclerosis [Unknown]
  - Hypertension [Unknown]
